FAERS Safety Report 13267765 (Version 1)
Quarter: 2017Q1

REPORT INFORMATION
  Report Type: Spontaneous
  Country: US (occurrence: US)
  Receive Date: 20170223
  Receipt Date: 20170223
  Transmission Date: 20170428
  Serious: Yes (Disabling, Other)
  Sender: FDA-Public Use
  Company Number: None

PATIENT
  Age: 53 Year
  Sex: Female
  Weight: 105.3 kg

DRUGS (8)
  1. OCCUVITE [Concomitant]
  2. LEVOFLOXACIN. [Suspect]
     Active Substance: LEVOFLOXACIN
     Indication: SINUSITIS
     Dosage: ?          QUANTITY:1 CAPSULE(S);?
     Route: 048
     Dates: start: 20161227, end: 20170222
  3. LEVOFLOXACIN. [Suspect]
     Active Substance: LEVOFLOXACIN
     Indication: PNEUMONIA
     Dosage: ?          QUANTITY:1 CAPSULE(S);?
     Route: 048
     Dates: start: 20161227, end: 20170222
  4. PREVACID [Concomitant]
     Active Substance: LANSOPRAZOLE
  5. DAILY VITAMIN [Concomitant]
     Active Substance: VITAMINS
  6. PAXIL [Concomitant]
     Active Substance: PAROXETINE HYDROCHLORIDE
  7. LEVOTHYROXINE. [Concomitant]
     Active Substance: LEVOTHYROXINE
  8. SIMVISTATIN [Concomitant]
     Active Substance: SIMVASTATIN

REACTIONS (7)
  - Gait disturbance [None]
  - Pruritus [None]
  - Pain in extremity [None]
  - Impaired driving ability [None]
  - Sleep disorder [None]
  - Arthralgia [None]
  - Heart rate increased [None]

NARRATIVE: CASE EVENT DATE: 20170126
